FAERS Safety Report 4898181-9 (Version None)
Quarter: 2006Q1

REPORT INFORMATION
  Report Type: 
  Country: None (occurrence: None)
  Receive Date: 20060127
  Receipt Date: 20060123
  Transmission Date: 20060701
  Serious: Yes (Life-Threatening, Hospitalization)
  Sender: FDA-Public Use
  Company Number: 200610333BWH

PATIENT
  Age: 80 Year
  Sex: Male
  Weight: 77.1115 kg

DRUGS (10)
  1. SORAFENIB [Suspect]
     Indication: METASTATIC RENAL CELL CARCINOMA
     Dosage: 400 MG, BID, ORAL
     Route: 048
     Dates: start: 20051115, end: 20051211
  2. AVAPRO [Concomitant]
  3. MICRONASE [Concomitant]
  4. ACIPHEX [Concomitant]
  5. PLAVIX [Concomitant]
  6. PROZAC [Concomitant]
  7. CRESTOR [Concomitant]
  8. MEGACE [Concomitant]
  9. XALATAN [Concomitant]
  10. ASPIRIN [Concomitant]

REACTIONS (2)
  - IMMOBILE [None]
  - PULMONARY EMBOLISM [None]
